FAERS Safety Report 10873305 (Version 2)
Quarter: 2015Q2

REPORT INFORMATION
  Report Type: Report from Study
  Country: BE (occurrence: None)
  Receive Date: 20150223
  Receipt Date: 20150408
  Transmission Date: 20150821
  Serious: Yes (Hospitalization, Other)
  Sender: FDA-Public Use
  Company Number: ADR-2015-00368

PATIENT
  Age: 73 Year
  Sex: Male
  Weight: 64.86 kg

DRUGS (1)
  1. LIORESAL [Suspect]
     Active Substance: BACLOFEN
     Indication: CEREBROVASCULAR ACCIDENT

REACTIONS (7)
  - Depressed level of consciousness [None]
  - Accidental overdose [None]
  - Toxicity to various agents [None]
  - Incorrect dose administered [None]
  - Hypersensitivity [None]
  - Wrong technique in drug usage process [None]
  - Confusional state [None]

NARRATIVE: CASE EVENT DATE: 20150202
